FAERS Safety Report 5131357-4 (Version None)
Quarter: 2006Q4

REPORT INFORMATION
  Report Type: 
  Country: None (occurrence: None)
  Receive Date: 20061016
  Receipt Date: 20060922
  Transmission Date: 20070319
  Serious: Yes (Other)
  Sender: FDA-Public Use
  Company Number: 2005133943

PATIENT
  Age: 45 Year
  Sex: Female
  Weight: 74.8435 kg

DRUGS (24)
  1. BEXTRA [Suspect]
     Indication: ARTHRALGIA
     Dosage: 10 MG (1 IN 1 D)
     Dates: start: 20041006, end: 20041207
  2. BEXTRA [Suspect]
     Indication: FIBROMYALGIA
     Dosage: 10 MG (1 IN 1 D)
     Dates: start: 20041006, end: 20041207
  3. BEXTRA [Suspect]
     Indication: PAIN
     Dosage: 10 MG (1 IN 1 D)
     Dates: start: 20041006, end: 20041207
  4. ALL OTHER THERAPEUTIC PRODUCTS (ALL OTHER THERAPEUTIC PRODUCTS) [Concomitant]
  5. PRILOSEC [Concomitant]
  6. IBUPROFEN [Concomitant]
  7. ASPIRIN [Concomitant]
  8. CELEBREX [Concomitant]
  9. DEMEROL [Concomitant]
  10. ACETAMINOPHEN [Concomitant]
  11. ULTRAM [Concomitant]
  12. VIOXX [Concomitant]
  13. DARVOCET [Concomitant]
  14. PREDNISONE TAB [Concomitant]
  15. PLAQUENIL [Concomitant]
  16. SKELAXIN [Concomitant]
  17. FLEXERIL [Concomitant]
  18. ALLEGRA-D 12 HOUR [Concomitant]
  19. LEXAPRO [Concomitant]
  20. PREVACID [Concomitant]
  21. BELLAMINE S (BELLADONNA ALKALOIDS, ERGOTAMINE TARTRATE, PHENOBARBITAL) [Concomitant]
  22. LAXATIVES (LAXATIVES) [Concomitant]
  23. GLUCOSAMINE (GLUCOSAMINE) [Concomitant]
  24. CALCIUM (CALCIUM) [Concomitant]

REACTIONS (2)
  - CEREBROVASCULAR ACCIDENT [None]
  - ENCEPHALOMALACIA [None]
